FAERS Safety Report 18648684 (Version 2)
Quarter: 2022Q3

REPORT INFORMATION
  Report Type: Spontaneous
  Country: US (occurrence: US)
  Receive Date: 20201222
  Receipt Date: 20220909
  Transmission Date: 20221026
  Serious: Yes (Other)
  Sender: FDA-Public Use
  Company Number: US-SAARTEMIS-SAC202012170709

PATIENT
  Age: 42 Year
  Sex: Female

DRUGS (1)
  1. ZANTAC [Suspect]
     Active Substance: RANITIDINE HYDROCHLORIDE
     Indication: Dyspepsia
     Dosage: 25 MG, FREQUENCY:PERIODS OF NON-USE (AT LEAST 3 MONTHS WITHOUT USE)
     Dates: start: 201001, end: 201901

REACTIONS (1)
  - Breast cancer stage I [Unknown]

NARRATIVE: CASE EVENT DATE: 20190401
